FAERS Safety Report 7601942-6 (Version None)
Quarter: 2011Q3

REPORT INFORMATION
  Report Type: 
  Country: None (occurrence: None)
  Receive Date: 20110711
  Receipt Date: 20110125
  Transmission Date: 20111222
  Serious: Yes (Death, Hospitalization, Other)
  Sender: FDA-Public Use
  Company Number: US-BAYER-201032105NA

PATIENT
  Age: 82 Year
  Sex: Female
  Weight: 77.098 kg

DRUGS (24)
  1. LIPITOR [Concomitant]
  2. METOPROLOL TARTRATE [Concomitant]
     Dosage: 50 MG, BID
  3. FENTANYL [Concomitant]
     Dosage: TITRATED
     Route: 042
  4. TRASYLOL [Suspect]
     Indication: PRODUCT USED FOR UNKNOWN INDICATION
     Dosage: 200 ML FOLLOWED BY CONTINUOUS 50 ML INFUSION
     Route: 042
     Dates: start: 20070711, end: 20070711
  5. FUROSEMIDE [Concomitant]
     Dosage: 80 MG, QD
     Route: 048
     Dates: start: 20060101
  6. ATORVASTATIN [Concomitant]
     Dosage: 10 MG,NIGHTLY
     Route: 048
  7. LISINOPRIL [Concomitant]
     Dosage: 10 MG, QD
     Route: 048
  8. SPIRONOLACTONE [Concomitant]
     Dosage: 25 MG, QD
     Route: 048
  9. HEPARIN [Concomitant]
     Dosage: 35,000 UNITS
     Route: 042
  10. NEXIUM [Concomitant]
     Dosage: 40 MG, QD
     Route: 048
  11. TRASYLOL [Suspect]
     Indication: MITRAL VALVE REPAIR
  12. DIGOXIN [Concomitant]
     Dosage: 0.125 MG, QD
     Route: 048
  13. NOREPINEPHRINE BITARTRATE [Concomitant]
     Dosage: TITRATED
     Route: 042
  14. AMIODARONE HCL [Concomitant]
     Dosage: TITRATED
     Route: 042
  15. NITROGLYCERIN [Concomitant]
     Indication: CHEST PAIN
     Dosage: 0.5 MG EVERY 5 MINUTES AS NEEDED
     Route: 048
  16. TRASYLOL [Suspect]
     Indication: CORONARY ARTERY BYPASS
  17. ACETYLSALICYLIC ACID SRT [Concomitant]
  18. NORVASC [Concomitant]
     Dosage: 5 MG, QD
     Route: 048
  19. AMLODIPINE [Concomitant]
  20. VANCOMYCIN [Concomitant]
     Dosage: 1 G,CONTINUING
     Route: 042
  21. MILRINONE [Concomitant]
     Dosage: TITRATED
     Route: 042
  22. COUMADIN [Concomitant]
     Dosage: 7.5 MG, QD
     Route: 048
  23. ZAROXOLYN [Concomitant]
     Dosage: 5 MG, QD
     Route: 048
  24. LIDOCAINE [Concomitant]
     Dosage: 50 MG, UNK
     Route: 042

REACTIONS (12)
  - RENAL FAILURE [None]
  - RENAL IMPAIRMENT [None]
  - FEAR [None]
  - UNEVALUABLE EVENT [None]
  - EMOTIONAL DISTRESS [None]
  - STRESS [None]
  - ANXIETY [None]
  - DEATH [None]
  - MULTI-ORGAN FAILURE [None]
  - RENAL INJURY [None]
  - PAIN [None]
  - INJURY [None]
